FAERS Safety Report 21628613 (Version 1)
Quarter: 2022Q4

REPORT INFORMATION
  Report Type: Spontaneous
  Country: US (occurrence: US)
  Receive Date: 20221122
  Receipt Date: 20221122
  Transmission Date: 20230113
  Serious: No
  Sender: FDA-Public Use
  Company Number: US-PFIZER INC-202201313756

PATIENT
  Age: 71 Year
  Sex: Female
  Weight: 49.9 kg

DRUGS (6)
  1. PAXLOVID [Interacting]
     Active Substance: NIRMATRELVIR\RITONAVIR
     Indication: COVID-19 treatment
     Dosage: UNK
     Dates: start: 20221119
  2. BENZONATATE [Interacting]
     Active Substance: BENZONATATE
     Indication: Cough
     Dosage: UNK
  3. IBUPROFEN [Interacting]
     Active Substance: IBUPROFEN
     Indication: Headache
     Dosage: 800 MG
  4. IBUPROFEN [Interacting]
     Active Substance: IBUPROFEN
     Indication: Back pain
  5. ATENOLOL [Concomitant]
     Active Substance: ATENOLOL
     Indication: Hypertension
     Dosage: 25 MG, 1X/DAY (AT NIGHT)
  6. TELMISARTAN [Concomitant]
     Active Substance: TELMISARTAN
     Indication: Hypertension
     Dosage: 80 MG, 1X/DAY (MORNING)

REACTIONS (7)
  - Drug interaction [Unknown]
  - Abdominal discomfort [Unknown]
  - Diarrhoea [Unknown]
  - Nausea [Unknown]
  - Headache [Unknown]
  - Back pain [Unknown]
  - Cough [Recovered/Resolved]

NARRATIVE: CASE EVENT DATE: 20221101
